FAERS Safety Report 20652993 (Version 1)
Quarter: 2022Q1

REPORT INFORMATION
  Report Type: Report from Study
  Country: CA (occurrence: None)
  Receive Date: 20220330
  Receipt Date: 20220330
  Transmission Date: 20220423
  Serious: Yes (Other)
  Sender: FDA-Public Use
  Company Number: CA-PFIZER INC-202200461874

PATIENT
  Age: 46 Year
  Sex: Female

DRUGS (4)
  1. METHOTREXATE [Suspect]
     Active Substance: METHOTREXATE
     Indication: Product used for unknown indication
     Route: 065
  2. COSENTYX [Suspect]
     Active Substance: SECUKINUMAB
     Indication: Psoriasis
     Route: 058
  3. OTEZLA [Concomitant]
     Active Substance: APREMILAST
     Route: 065
  4. PROTOPIC [Concomitant]
     Active Substance: TACROLIMUS
     Route: 065

REACTIONS (8)
  - Crohn^s disease [Unknown]
  - Feeling abnormal [Unknown]
  - Gastrointestinal disorder [Unknown]
  - Headache [Unknown]
  - Nausea [Unknown]
  - Pruritus [Unknown]
  - Scratch [Unknown]
  - Stress [Unknown]
